FAERS Safety Report 11928496 (Version 4)
Quarter: 2017Q1

REPORT INFORMATION
  Report Type: Spontaneous
  Country: US (occurrence: US)
  Receive Date: 20160119
  Receipt Date: 20170202
  Transmission Date: 20170428
  Serious: Yes (Other)
  Sender: FDA-Public Use
  Company Number: US-PFIZER INC-2016010183

PATIENT
  Age: 65 Year
  Sex: Male

DRUGS (7)
  1. SIROLIMUS. [Suspect]
     Active Substance: SIROLIMUS
     Indication: PROPHYLAXIS AGAINST GRAFT VERSUS HOST DISEASE
     Dosage: 12 MG, DAILY (LOADING DOSE)
  2. ACYCLOVIR. [Concomitant]
     Active Substance: ACYCLOVIR
     Indication: PROPHYLAXIS
     Dosage: 800 MG, 2X/DAY
     Route: 048
     Dates: start: 20150717
  3. CIPROFLOXACIN. [Concomitant]
     Active Substance: CIPROFLOXACIN
     Indication: PROPHYLAXIS
     Dosage: 400 MG, 2X/DAY
     Route: 048
     Dates: start: 20150717
  4. TACROLIMUS. [Interacting]
     Active Substance: TACROLIMUS
     Indication: PROPHYLAXIS AGAINST GRAFT VERSUS HOST DISEASE
     Dosage: UNK
  5. CLOTRIMAZOLE. [Interacting]
     Active Substance: CLOTRIMAZOLE
     Indication: ORAL CANDIDIASIS
     Dosage: 50 MG, DAILY (10 MG, 5 TIMES DAILY)
     Route: 048
  6. SIROLIMUS. [Interacting]
     Active Substance: SIROLIMUS
     Dosage: 4 MG, DAILY
  7. MICAFUNGIN [Concomitant]
     Active Substance: MICAFUNGIN
     Indication: PROPHYLAXIS
     Dosage: 50 MG, 1X/DAY
     Dates: start: 20150717

REACTIONS (4)
  - Product use issue [Unknown]
  - Drug interaction [Recovered/Resolved]
  - Drug level above therapeutic [Recovered/Resolved]
  - Acute kidney injury [Recovered/Resolved]

NARRATIVE: CASE EVENT DATE: 201508
